FAERS Safety Report 9528930 (Version 1)
Quarter: 2013Q3

REPORT INFORMATION
  Report Type: Report from Study
  Country: CN (occurrence: CN)
  Receive Date: 20130917
  Receipt Date: 20130917
  Transmission Date: 20140515
  Serious: Yes (Death)
  Sender: FDA-Public Use
  Company Number: CN-ASTRAZENECA-2013SE69402

PATIENT
  Sex: 0

DRUGS (6)
  1. PROPOFOL [Suspect]
     Indication: INDUCTION OF ANAESTHESIA
     Route: 042
  2. ISOFLURANE [Suspect]
     Indication: MAINTENANCE OF ANAESTHESIA
     Dosage: 1-2 %
  3. MIDAZOLAM [Concomitant]
     Indication: INDUCTION OF ANAESTHESIA
  4. REMIFENTANIL [Concomitant]
     Indication: INDUCTION OF ANAESTHESIA
  5. VECURONIUM [Concomitant]
     Indication: INDUCTION OF ANAESTHESIA
  6. NITROUS OXIDE [Concomitant]
     Indication: MAINTENANCE OF ANAESTHESIA
     Dosage: 50 % IN OXYGEN

REACTIONS (1)
  - Hyperthermia malignant [Fatal]
